FAERS Safety Report 9926031 (Version 3)
Quarter: 2014Q2

REPORT INFORMATION
  Report Type: Spontaneous
  Country: US (occurrence: US)
  Receive Date: 20140226
  Receipt Date: 20140522
  Transmission Date: 20141212
  Serious: Yes (Death, Other)
  Sender: FDA-Public Use
  Company Number: US-TEVA-464869USA

PATIENT
  Age: 52 Year
  Sex: Female
  Weight: 46.76 kg

DRUGS (4)
  1. ACTIQ [Suspect]
     Indication: CANCER PAIN
     Dates: start: 201307
  2. FENTORA [Suspect]
     Indication: CANCER PAIN
  3. METHADONE [Concomitant]
     Indication: PAIN
  4. VARIOUS OTHER MEDICATIONS [Concomitant]
     Indication: PAIN

REACTIONS (1)
  - Metastatic neoplasm [Fatal]
